FAERS Safety Report 7013484-X (Version None)
Quarter: 2010Q3

REPORT INFORMATION
  Report Type: 
  Country: None (occurrence: None)
  Receive Date: 20100924
  Receipt Date: 20100914
  Transmission Date: 20110219
  Serious: Yes (Other)
  Sender: FDA-Public Use
  Company Number: US-PFIZER INC-2010098188

PATIENT
  Sex: Female
  Weight: 76.644 kg

DRUGS (12)
  1. LYRICA [Suspect]
     Indication: FIBROMYALGIA
     Dosage: UNK
     Dates: start: 20080219, end: 20080423
  2. ZOLOFT [Concomitant]
     Indication: ANXIETY
     Dosage: UNK
  3. ZOLOFT [Concomitant]
     Indication: DEPRESSION
  4. DEPAKOTE [Concomitant]
     Dosage: UNK
  5. ETODOLAC [Concomitant]
     Dosage: UNK
  6. LEVOXYL [Concomitant]
     Dosage: UNK
  7. PRILOSEC [Concomitant]
     Dosage: UNK
  8. PLAQUENIL [Concomitant]
     Dosage: UNK
  9. MONTELUKAST [Concomitant]
     Dosage: UNK
  10. CLARITIN [Concomitant]
     Dosage: UNK
  11. ALLEGRA [Concomitant]
     Dosage: UNK
  12. LORAZEPAM [Concomitant]
     Dosage: UNK

REACTIONS (2)
  - HALLUCINATION [None]
  - MYOCLONUS [None]
